FAERS Safety Report 9731650 (Version 2)
Quarter: 2013Q4

REPORT INFORMATION
  Report Type: Report from Study
  Country: US (occurrence: US)
  Receive Date: 20131205
  Receipt Date: 20131205
  Transmission Date: 20140711
  Serious: Yes (Other)
  Sender: FDA-Public Use
  Company Number: US-ROCHE-1248436

PATIENT
  Age: 11 Year
  Sex: Female
  Weight: 25.7 kg

DRUGS (4)
  1. NUTROPIN AQ [Suspect]
     Indication: GROWTH HORMONE DEFICIENCY
     Route: 058
     Dates: start: 20121219, end: 20130422
  2. NUTROPIN AQ [Suspect]
     Route: 058
     Dates: start: 20130422
  3. CLONIDINE [Concomitant]
     Route: 048
     Dates: start: 20130422
  4. RITALIN [Concomitant]
     Route: 048

REACTIONS (9)
  - Pain in extremity [Unknown]
  - Arthralgia [Unknown]
  - Chest pain [Unknown]
  - Headache [Unknown]
  - Sleep disorder [Unknown]
  - Anxiety [Unknown]
  - Abnormal behaviour [Unknown]
  - Injection site pain [Recovered/Resolved]
  - Drug dose omission [Unknown]
